FAERS Safety Report 6002484-4 (Version None)
Quarter: 2008Q4

REPORT INFORMATION
  Report Type: 
  Country: None (occurrence: None)
  Receive Date: 20081215
  Receipt Date: 20080104
  Transmission Date: 20090506
  Serious: No
  Sender: FDA-Public Use
  Company Number: US-AMGEN-KDL254132

PATIENT
  Sex: Female

DRUGS (1)
  1. ENBREL [Suspect]
     Indication: RHEUMATOID ARTHRITIS

REACTIONS (6)
  - CHEST PAIN [None]
  - FOOT DEFORMITY [None]
  - HYPERKERATOSIS [None]
  - LYMPHADENOPATHY [None]
  - PNEUMONIA [None]
  - RHEUMATOID ARTHRITIS [None]
